FAERS Safety Report 4606592-1 (Version None)
Quarter: 2005Q2

REPORT INFORMATION
  Report Type: 
  Country: None (occurrence: None)
  Receive Date: 20050223
  Receipt Date: 20040621
  Transmission Date: 20051028
  Serious: Yes (Disabling)
  Sender: FDA-Public Use
  Company Number: WAES 0406USA02015

PATIENT
  Sex: Male

DRUGS (6)
  1. ZOCOR [Suspect]
     Indication: BLOOD CHOLESTEROL INCREASED
     Dosage: 80 MG/DAILY/PO
     Route: 048
  2. ACTONEL [Concomitant]
  3. ADALAT [Concomitant]
  4. HYTRIN [Concomitant]
  5. NEXIUM [Concomitant]
  6. SYNTHROID [Concomitant]

REACTIONS (2)
  - DIZZINESS [None]
  - MYALGIA [None]
